FAERS Safety Report 11208366 (Version 4)
Quarter: 2015Q3

REPORT INFORMATION
  Report Type: Spontaneous
  Country: NO (occurrence: NO)
  Receive Date: 20150622
  Receipt Date: 20150907
  Transmission Date: 20151125
  Serious: Yes (Other)
  Sender: FDA-Public Use
  Company Number: ALCN2015NO003708

PATIENT
  Age: 55 Year
  Sex: Male

DRUGS (2)
  1. MAXIDEX [Suspect]
     Active Substance: DEXAMETHASONE
     Indication: INTRAOCULAR LENS IMPLANT
     Dosage: 6 GTT, QD
     Route: 047
     Dates: start: 20150528, end: 20150605
  2. NEVANAC [Suspect]
     Active Substance: NEPAFENAC
     Indication: INTRAOCULAR LENS IMPLANT
     Dosage: UNK UNK, NO TREATMENT
     Route: 047

REACTIONS (4)
  - Intraocular pressure increased [Recovered/Resolved]
  - Product commingling [Unknown]
  - Incorrect dose administered [Unknown]
  - Wrong drug administered [Unknown]
